FAERS Safety Report 18474798 (Version 1)
Quarter: 2020Q4

REPORT INFORMATION
  Report Type: Report from Study
  Country: CA (occurrence: CA)
  Receive Date: 20201106
  Receipt Date: 20201106
  Transmission Date: 20210114
  Serious: Yes (Other)
  Sender: FDA-Public Use
  Company Number: CA-JNJFOC-20201052117

PATIENT
  Age: 35 Year
  Sex: Female

DRUGS (1)
  1. REMICADE [Suspect]
     Active Substance: INFLIXIMAB
     Indication: CROHN^S DISEASE
     Route: 042

REACTIONS (6)
  - Pruritus [Unknown]
  - Pain in extremity [Unknown]
  - Infusion related reaction [Unknown]
  - Musculoskeletal stiffness [Unknown]
  - Erythema [Unknown]
  - Injection site erythema [Unknown]

NARRATIVE: CASE EVENT DATE: 20201029
